FAERS Safety Report 24996200 (Version 1)
Quarter: 2025Q1

REPORT INFORMATION
  Report Type: Spontaneous
  Country: TR (occurrence: TR)
  Receive Date: 20250221
  Receipt Date: 20250221
  Transmission Date: 20250409
  Serious: Yes (Death, Life-Threatening, Hospitalization, Other)
  Sender: NOVITIUM PHARMA
  Company Number: TR-NOVITIUMPHARMA-2025TRNVP00392

PATIENT
  Age: 21 Year
  Sex: Male

DRUGS (14)
  1. DEXAMETHASONE [Suspect]
     Active Substance: DEXAMETHASONE
     Indication: Precursor T-lymphoblastic lymphoma/leukaemia
  2. DEXAMETHASONE [Suspect]
     Active Substance: DEXAMETHASONE
     Indication: Precursor T-lymphoblastic leukaemia acute
  3. METHYLPREDNISOLONE [Concomitant]
     Active Substance: METHYLPREDNISOLONE
  4. METHYLPREDNISOLONE [Concomitant]
     Active Substance: METHYLPREDNISOLONE
  5. DAUNORUBICIN [Concomitant]
     Active Substance: DAUNORUBICIN
     Route: 042
  6. VINCRISTINE [Concomitant]
     Active Substance: VINCRISTINE
     Route: 042
  7. ASPARAGINASE [Concomitant]
     Active Substance: ASPARAGINASE
     Route: 042
  8. METHOTREXATE [Concomitant]
     Active Substance: METHOTREXATE
  9. DARATUMUMAB [Concomitant]
     Active Substance: DARATUMUMAB
     Route: 042
  10. VENETOCLAX [Concomitant]
     Active Substance: VENETOCLAX
  11. VENETOCLAX [Concomitant]
     Active Substance: VENETOCLAX
  12. VENETOCLAX [Concomitant]
     Active Substance: VENETOCLAX
  13. AZACITIDINE [Concomitant]
     Active Substance: AZACITIDINE
  14. MICAFUNGIN [Concomitant]
     Active Substance: MICAFUNGIN SODIUM
     Indication: Antifungal prophylaxis

REACTIONS (10)
  - Acute respiratory distress syndrome [Fatal]
  - Neutropenia [Unknown]
  - Bronchopulmonary aspergillosis [Unknown]
  - Bacterial sepsis [Unknown]
  - Haemophilus infection [Unknown]
  - Catheter site thrombosis [None]
  - Pulmonary embolism [None]
  - Pleural effusion [None]
  - Drug ineffective [None]
  - Off label use [None]
